FAERS Safety Report 14322735 (Version 1)
Quarter: 2017Q4

REPORT INFORMATION
  Report Type: Spontaneous
  Country: BR (occurrence: BR)
  Receive Date: 20171225
  Receipt Date: 20171225
  Transmission Date: 20180321
  Serious: Yes (Other)
  Sender: FDA-Public Use
  Company Number: BR-BAXTER-2017BAX043271

PATIENT
  Age: 25 Year
  Sex: Male
  Weight: 92 kg

DRUGS (2)
  1. BUPICAN HEAVY [Suspect]
     Active Substance: BUPIVACAINE HYDROCHLORIDE
     Dosage: ADDITIONAL ADMINISTRATION (DOSE INCREASED)
     Route: 037
     Dates: start: 20170828, end: 20170828
  2. BUPICAN HEAVY [Suspect]
     Active Substance: BUPIVACAINE HYDROCHLORIDE
     Indication: ANAESTHESIA PROCEDURE
     Dosage: WITH NO DILUTION
     Route: 037
     Dates: start: 20170828, end: 20170828

REACTIONS (1)
  - Drug ineffective [Recovered/Resolved]

NARRATIVE: CASE EVENT DATE: 20170828
